FAERS Safety Report 17958332 (Version 1)
Quarter: 2020Q2

REPORT INFORMATION
  Report Type: Spontaneous
  Country: GR (occurrence: GR)
  Receive Date: 20200629
  Receipt Date: 20200629
  Transmission Date: 20200714
  Serious: Yes (Hospitalization, Other)
  Sender: FDA-Public Use
  Company Number: GR-ASTRAZENECA-2020SE80227

PATIENT
  Age: 78 Year
  Sex: Female

DRUGS (6)
  1. OLMETEC [Concomitant]
     Active Substance: OLMESARTAN MEDOXOMIL
  2. CALCIORAL [Concomitant]
     Dosage: UNKNOWN DAILY
  3. ROSUVASTATIN. [Concomitant]
     Active Substance: ROSUVASTATIN
  4. XIGDUO XR [Suspect]
     Active Substance: DAPAGLIFLOZIN PROPANEDIOL\METFORMIN HYDROCHLORIDE
     Indication: TYPE 2 DIABETES MELLITUS
     Dosage: (5+1000) MG DAILY
     Route: 048
     Dates: start: 201910
  5. LOGIMAX [Concomitant]
     Active Substance: FELODIPINE\METOPROLOL SUCCINATE
  6. T4 [Concomitant]
     Active Substance: LEVOTHYROXINE

REACTIONS (3)
  - Pseudomembranous colitis [Not Recovered/Not Resolved]
  - Renal impairment [Unknown]
  - Off label use [Unknown]
